FAERS Safety Report 13759181 (Version 1)
Quarter: 2017Q3

REPORT INFORMATION
  Report Type: Spontaneous
  Country: US (occurrence: US)
  Receive Date: 20170717
  Receipt Date: 20170717
  Transmission Date: 20171127
  Serious: No
  Sender: FDA-Public Use
  Company Number: US-ELI_LILLY_AND_COMPANY-US201707002051

PATIENT
  Sex: Male

DRUGS (2)
  1. DULOXETINE. [Suspect]
     Active Substance: DULOXETINE
     Indication: NEURALGIA
     Dosage: 30 MG, DAILY
     Route: 065
  2. CYMBALTA [Suspect]
     Active Substance: DULOXETINE HYDROCHLORIDE
     Indication: NEURALGIA
     Dosage: 30 MG, DAILY
     Route: 048
     Dates: start: 2014

REACTIONS (16)
  - Hypoaesthesia [Unknown]
  - Feeling abnormal [Unknown]
  - Headache [Unknown]
  - Withdrawal syndrome [Unknown]
  - Irritability [Unknown]
  - Vomiting [Unknown]
  - Insomnia [Unknown]
  - Tinnitus [Unknown]
  - Diarrhoea [Unknown]
  - Off label use [Unknown]
  - Anxiety [Unknown]
  - Hyperhidrosis [Unknown]
  - Paraesthesia [Unknown]
  - Dizziness [Unknown]
  - Nausea [Unknown]
  - Fatigue [Unknown]

NARRATIVE: CASE EVENT DATE: 2014
